FAERS Safety Report 9465911 (Version 1)
Quarter: 2013Q3

REPORT INFORMATION
  Report Type: Spontaneous
  Country: US (occurrence: US)
  Receive Date: 20130820
  Receipt Date: 20130820
  Transmission Date: 20140515
  Serious: Yes (Death, Hospitalization)
  Sender: FDA-Public Use
  Company Number: US-ELI_LILLY_AND_COMPANY-US201308005964

PATIENT
  Sex: Male

DRUGS (1)
  1. GEMZAR [Suspect]
     Route: 042

REACTIONS (4)
  - Death [Fatal]
  - Mucosal inflammation [Unknown]
  - Transaminases increased [Unknown]
  - Blood bilirubin increased [Unknown]
